FAERS Safety Report 8394862-3 (Version None)
Quarter: 2012Q2

REPORT INFORMATION
  Report Type: 
  Country: None (occurrence: None)
  Receive Date: 20120530
  Receipt Date: 20120519
  Transmission Date: 20120825
  Serious: Yes (Other)
  Sender: FDA-Public Use
  Company Number: US-PERRIGO-12US004455

PATIENT
  Sex: Female

DRUGS (1)
  1. DIPHENHYDRAMINE HCL [Suspect]
     Indication: PRODUCT USED FOR UNKNOWN INDICATION
     Dosage: UNKNOWN, UNKNOWN
     Route: 048
     Dates: start: 20120515

REACTIONS (5)
  - INSOMNIA [None]
  - EXPIRED DRUG ADMINISTERED [None]
  - PALPITATIONS [None]
  - CHEST PAIN [None]
  - FATIGUE [None]
